FAERS Safety Report 4297037-2 (Version None)
Quarter: 2004Q1

REPORT INFORMATION
  Report Type: 
  Country: None (occurrence: None)
  Receive Date: 20040213
  Receipt Date: 20040202
  Transmission Date: 20041129
  Serious: Yes (Other)
  Sender: FDA-Public Use
  Company Number: 2004008056

PATIENT
  Age: 50 Year
  Sex: Male

DRUGS (1)
  1. TAHOR (ATORVASTATIN) [Suspect]
     Indication: HYPERCHOLESTEROLAEMIA
     Dosage: 10 MG (DAILY), UNKNOWN
     Dates: start: 20031129, end: 20040101

REACTIONS (7)
  - BUTTOCK PAIN [None]
  - C-REACTIVE PROTEIN INCREASED [None]
  - ERYTHEMA [None]
  - MUSCLE CRAMP [None]
  - OEDEMA PERIPHERAL [None]
  - PAIN IN EXTREMITY [None]
  - RED BLOOD CELL SEDIMENTATION RATE INCREASED [None]
